FAERS Safety Report 7337605-4 (Version None)
Quarter: 2011Q1

REPORT INFORMATION
  Report Type: 
  Country: None (occurrence: None)
  Receive Date: 20110308
  Receipt Date: 20110225
  Transmission Date: 20110831
  Serious: Yes (Life-Threatening, Hospitalization)
  Sender: FDA-Public Use
  Company Number: FR-PFIZER INC-FR-WYE-H10255109

PATIENT
  Sex: Male

DRUGS (20)
  1. AMBISOME [Interacting]
     Dosage: 180 MG, 1X/DAY
     Route: 042
     Dates: start: 20090519, end: 20090528
  2. ANCOTIL [Concomitant]
     Dosage: UNK
     Route: 065
     Dates: start: 20090422, end: 20090509
  3. CORDARONE [Suspect]
     Dosage: 400.0 MG, 1X/DAY
     Route: 048
     Dates: start: 20090507, end: 20090602
  4. ANCOTIL [Concomitant]
     Dosage: UNK
     Route: 065
     Dates: start: 20090602
  5. SPIRONOLACTONE [Concomitant]
     Dosage: UNK
     Route: 048
     Dates: start: 20090430
  6. SUBUTEX [Concomitant]
     Route: 048
  7. TARDYFERON [Concomitant]
     Dosage: UNK
     Route: 048
     Dates: start: 20090429
  8. DAFALGAN [Concomitant]
     Dosage: UNK
     Route: 048
     Dates: start: 20090429
  9. DIFFU K [Concomitant]
     Dosage: UNK
     Route: 048
     Dates: start: 20090503, end: 20090524
  10. ALPRAZOLAM [Concomitant]
     Dosage: UNK
     Route: 048
     Dates: start: 20090430
  11. ACUPAN [Concomitant]
     Dosage: UNK
     Route: 065
     Dates: start: 20090509, end: 20090527
  12. DIFFU K [Concomitant]
     Dosage: UNK
     Route: 048
     Dates: start: 20090530
  13. NEXIUM [Concomitant]
     Dosage: UNK
     Route: 048
     Dates: start: 20090429
  14. LASIX [Concomitant]
     Dosage: UNK
     Route: 048
     Dates: start: 20090503
  15. HEPARIN [Concomitant]
     Dosage: UNK
     Route: 042
     Dates: start: 20090429
  16. TRIFLUCAN [Interacting]
     Dosage: 400.0 MG, 2X/DAY
     Route: 042
     Dates: start: 20090514, end: 20090602
  17. AMBISOME [Interacting]
     Dosage: UNK
     Route: 042
     Dates: start: 20090422, end: 20090509
  18. AMBISOME [Interacting]
     Dosage: UNK
     Route: 042
     Dates: start: 20090101
  19. NICOTINE [Concomitant]
     Route: 061
  20. CARDENSIEL [Interacting]
     Dosage: 7.5 MG, 1X/DAY
     Route: 048
     Dates: start: 20090515, end: 20090602

REACTIONS (4)
  - MYOCLONIC EPILEPSY [None]
  - CARDIO-RESPIRATORY ARREST [None]
  - DRUG INTERACTION [None]
  - TORSADE DE POINTES [None]
